APPROVED DRUG PRODUCT: HYDROCODONE BITARTRATE AND IBUPROFEN
Active Ingredient: HYDROCODONE BITARTRATE; IBUPROFEN
Strength: 5MG;200MG
Dosage Form/Route: TABLET;ORAL
Application: A077454 | Product #001
Applicant: ANI PHARMACEUTICALS INC
Approved: Jun 23, 2010 | RLD: No | RS: No | Type: DISCN